FAERS Safety Report 25272495 (Version 1)
Quarter: 2025Q2

REPORT INFORMATION
  Report Type: Report from Study
  Country: US (occurrence: US)
  Receive Date: 20250506
  Receipt Date: 20250506
  Transmission Date: 20250717
  Serious: Yes (Hospitalization)
  Sender: ABBVIE
  Company Number: US-ABBVIE-6263008

PATIENT
  Age: 85 Year
  Sex: Male

DRUGS (1)
  1. SKYRIZI [Suspect]
     Active Substance: RISANKIZUMAB-RZAA
     Indication: Psoriasis
     Route: 058
     Dates: start: 20220425

REACTIONS (2)
  - Gastric haemorrhage [Unknown]
  - Full blood count decreased [Recovered/Resolved]

NARRATIVE: CASE EVENT DATE: 20250301
